FAERS Safety Report 9100104 (Version 1)
Quarter: 2013Q1

REPORT INFORMATION
  Report Type: Spontaneous
  Country: US (occurrence: US)
  Receive Date: 20130215
  Receipt Date: 20130215
  Transmission Date: 20140127
  Serious: No
  Sender: FDA-Public Use
  Company Number: US-PFIZER INC-2013057108

PATIENT
  Age: 63 Year
  Sex: Female

DRUGS (2)
  1. ESTRING [Suspect]
     Dosage: 2 MG, EVERY 3 MONTHS
     Route: 067
     Dates: end: 20130210
  2. METFORMIN HYDROCHLORIDE [Concomitant]
     Indication: DIABETES MELLITUS
     Dosage: 1000 MG, 2X/DAY

REACTIONS (4)
  - Product quality issue [Recovering/Resolving]
  - Vulvovaginal burning sensation [Recovering/Resolving]
  - Muscle spasms [Recovering/Resolving]
  - Vulvovaginal discomfort [Recovering/Resolving]
